FAERS Safety Report 12916412 (Version 1)
Quarter: 2016Q4

REPORT INFORMATION
  Report Type: Spontaneous
  Country: US (occurrence: US)
  Receive Date: 20161107
  Receipt Date: 20161107
  Transmission Date: 20170207
  Serious: Yes (Death, Other)
  Sender: FDA-Public Use
  Company Number: US-BRISTOL-MYERS SQUIBB COMPANY-BMS-2016-093316

PATIENT
  Sex: Female

DRUGS (2)
  1. OPDIVO [Suspect]
     Active Substance: NIVOLUMAB
     Indication: HEPATIC CANCER
     Dosage: 190 MG, Q2WK
     Route: 042
     Dates: start: 20160630
  2. OPDIVO [Suspect]
     Active Substance: NIVOLUMAB
     Indication: PRODUCT USED FOR UNKNOWN INDICATION
     Dosage: 190 MG, Q2WK
     Route: 042
     Dates: start: 20160714

REACTIONS (2)
  - Product use issue [Unknown]
  - Death [Fatal]
